FAERS Safety Report 7067487-X (Version None)
Quarter: 2010Q4

REPORT INFORMATION
  Report Type: 
  Country: None (occurrence: None)
  Receive Date: 20101020
  Receipt Date: 20101005
  Transmission Date: 20110411
  Serious: Yes (Hospitalization, Other)
  Sender: FDA-Public Use
  Company Number: TPA2010A05109

PATIENT
  Age: 81 Year
  Sex: Male
  Weight: 85.7 kg

DRUGS (9)
  1. ULORIC [Suspect]
     Indication: GOUT
     Dosage: 80 MG, 1 IN 1 D
     Dates: start: 20100601, end: 20100823
  2. ZOCOR [Suspect]
     Dosage: 20 MG, 1 IN 1 D
  3. LISINOPRIL [Concomitant]
  4. METOPROLOL SUCCINATE [Concomitant]
  5. SPIRIVA [Concomitant]
  6. BUMEX [Concomitant]
  7. COLCHICINE [Concomitant]
  8. NITROSTAT [Concomitant]
  9. ASPIRIN [Concomitant]

REACTIONS (7)
  - EMPHYSEMA [None]
  - GAIT DISTURBANCE [None]
  - INCORRECT DRUG ADMINISTRATION DURATION [None]
  - MEDICATION ERROR [None]
  - PULMONARY FIBROSIS [None]
  - RENAL FAILURE ACUTE [None]
  - RHABDOMYOLYSIS [None]
